FAERS Safety Report 6632438-6 (Version None)
Quarter: 2010Q1

REPORT INFORMATION
  Report Type: 
  Country: None (occurrence: None)
  Receive Date: 20100312
  Receipt Date: 20091030
  Transmission Date: 20100710
  Serious: No
  Sender: FDA-Public Use
  Company Number: 2009BI011448

PATIENT
  Age: 43 Year
  Sex: Female

DRUGS (2)
  1. AVONEX [Suspect]
     Indication: MULTIPLE SCLEROSIS
     Route: 030
     Dates: start: 20090322, end: 20090101
  2. AMBIEN [Concomitant]
     Indication: SLEEP DISORDER
     Route: 048

REACTIONS (5)
  - BALANCE DISORDER [None]
  - DYSPHEMIA [None]
  - GAIT DISTURBANCE [None]
  - HEPATIC ENZYME INCREASED [None]
  - INJECTION SITE PAIN [None]
